FAERS Safety Report 5369352-2 (Version None)
Quarter: 2007Q2

REPORT INFORMATION
  Report Type: 
  Country: None (occurrence: None)
  Receive Date: 20070625
  Receipt Date: 20070321
  Transmission Date: 20071010
  Serious: No
  Sender: FDA-Public Use
  Company Number: US-ASTRAZENECA-2007UW05584

PATIENT
  Age: 72 Year
  Sex: Female
  Weight: 74.8 kg

DRUGS (3)
  1. CRESTOR [Suspect]
     Indication: BLOOD CHOLESTEROL
     Route: 048
  2. PRILOSEC [Concomitant]
  3. ATENOLOL [Concomitant]

REACTIONS (2)
  - PRURITUS ANI [None]
  - VULVOVAGINAL PRURITUS [None]
